FAERS Safety Report 7226914-5 (Version None)
Quarter: 2011Q1

REPORT INFORMATION
  Report Type: 
  Country: None (occurrence: None)
  Receive Date: 20110105
  Receipt Date: 20101222
  Transmission Date: 20110831
  Serious: Yes (Hospitalization)
  Sender: FDA-Public Use
  Company Number: 1000017960

PATIENT
  Age: 50 Year
  Sex: Male
  Weight: 123 kg

DRUGS (14)
  1. ALLOPURINOL [Concomitant]
  2. ESCITALOPRAM [Suspect]
     Indication: SCHIZOAFFECTIVE DISORDER DEPRESSIVE TYPE
     Dosage: 20 MG (20 MG, 1 IN 1 D), ORAL
     Route: 048
     Dates: start: 20100101
  3. FERRO GRADUMET (FERROUS SULFATE) (FERROUS SULFATE) [Concomitant]
  4. BECOZYME (B-COMPLEX) (B-COMPLEX) [Concomitant]
  5. BENERVA (THIAMINE HYDROCHLORIDE) (THIAMINE HYDROCHLORIDE) [Concomitant]
  6. REMERON [Suspect]
     Indication: SCHIZOAFFECTIVE DISORDER DEPRESSIVE TYPE
     Dosage: 15 MG (15 MG, 1 IN 1 D), ORAL; 30 MG (30 MG, 1 IN 1 D), ORAL; 45 MG (45 MG, 1 IN 1 D), ORAL
     Route: 048
     Dates: start: 20101109, end: 20101111
  7. REMERON [Suspect]
     Indication: SCHIZOAFFECTIVE DISORDER DEPRESSIVE TYPE
     Dosage: 15 MG (15 MG, 1 IN 1 D), ORAL; 30 MG (30 MG, 1 IN 1 D), ORAL; 45 MG (45 MG, 1 IN 1 D), ORAL
     Route: 048
     Dates: start: 20101112, end: 20101118
  8. REMERON [Suspect]
     Indication: SCHIZOAFFECTIVE DISORDER DEPRESSIVE TYPE
     Dosage: 15 MG (15 MG, 1 IN 1 D), ORAL; 30 MG (30 MG, 1 IN 1 D), ORAL; 45 MG (45 MG, 1 IN 1 D), ORAL
     Route: 048
     Dates: start: 20101119
  9. ANXIOLIT (OXAZEPAM) (OXAZEPAM) [Concomitant]
  10. SEROQUEL XR [Suspect]
     Indication: SCHIZOAFFECTIVE DISORDER DEPRESSIVE TYPE
     Dosage: SEE IMAGE
     Route: 048
     Dates: start: 20101105, end: 20101119
  11. SEROQUEL XR [Suspect]
     Indication: SCHIZOAFFECTIVE DISORDER DEPRESSIVE TYPE
     Dosage: SEE IMAGE
     Route: 048
     Dates: start: 20101124
  12. SEROQUEL XR [Suspect]
     Indication: SCHIZOAFFECTIVE DISORDER DEPRESSIVE TYPE
     Dosage: SEE IMAGE
     Route: 048
     Dates: start: 20101103, end: 20101104
  13. SEROQUEL XR [Suspect]
     Indication: SCHIZOAFFECTIVE DISORDER DEPRESSIVE TYPE
     Dosage: SEE IMAGE
     Route: 048
     Dates: start: 20101120, end: 20101101
  14. CAMPRAL (ACAMPROSATE CALCIUM) (ACAMPROSATE CALCIUM) [Concomitant]

REACTIONS (4)
  - FALL [None]
  - GRAND MAL CONVULSION [None]
  - LOSS OF CONSCIOUSNESS [None]
  - HEAD INJURY [None]
